FAERS Safety Report 18690914 (Version 10)
Quarter: 2021Q2

REPORT INFORMATION
  Report Type: Report from Study
  Country: CO (occurrence: CO)
  Receive Date: 20210101
  Receipt Date: 20210624
  Transmission Date: 20210717
  Serious: Yes (Other)
  Sender: FDA-Public Use
  Company Number: CO-TAKEDA-CO201939388

PATIENT
  Age: 56 Year
  Sex: Female
  Weight: 65 kg

DRUGS (2)
  1. ICATIBANT [Suspect]
     Active Substance: ICATIBANT ACETATE
     Indication: HEREDITARY ANGIOEDEMA
     Dosage: 30 MG/3 ML, EVERY 6 HRS
     Route: 058
     Dates: start: 20151110
  2. ICATIBANT [Suspect]
     Active Substance: ICATIBANT ACETATE
     Indication: HEREDITARY ANGIOEDEMA
     Dosage: 30 MG/3 ML, EVERY 6 HRS
     Route: 058
     Dates: start: 20151110

REACTIONS (12)
  - Suspected COVID-19 [Unknown]
  - Pain in extremity [Recovered/Resolved]
  - Headache [Recovering/Resolving]
  - Jaw operation [Unknown]
  - Accident [Unknown]
  - Product availability issue [Unknown]
  - Neck pain [Recovered/Resolved]
  - Pharyngeal inflammation [Recovered/Resolved]
  - Breast discharge [Unknown]
  - Arthralgia [Recovered/Resolved]
  - Oropharyngeal pain [Recovered/Resolved]
  - Mammogram abnormal [Unknown]

NARRATIVE: CASE EVENT DATE: 20210109
